FAERS Safety Report 4324812-8 (Version None)
Quarter: 2004Q1

REPORT INFORMATION
  Report Type: 
  Country: None (occurrence: None)
  Receive Date: 20040326
  Receipt Date: 20040316
  Transmission Date: 20041129
  Serious: Yes (Life-Threatening, Hospitalization)
  Sender: FDA-Public Use
  Company Number: FR-GLAXOSMITHKLINE-B0327304A

PATIENT
  Sex: Male
  Weight: 2.7 kg

DRUGS (8)
  1. RETROVIR [Suspect]
     Indication: ANTIVIRAL PROPHYLAXIS
     Route: 048
     Dates: start: 20040207, end: 20040209
  2. RETROVIR [Suspect]
     Route: 042
     Dates: start: 20040205, end: 20040207
  3. RETROVIR [Suspect]
     Indication: HIV INFECTION
     Dates: start: 20040205, end: 20040205
  4. COMBIVIR [Suspect]
     Indication: HIV INFECTION
     Dates: start: 20030123
  5. VIRAMUNE [Suspect]
     Indication: HIV INFECTION
     Dates: start: 20030123
  6. AUGMENTIN [Concomitant]
  7. CEFOTAXIME [Concomitant]
  8. PETHIDINE [Concomitant]

REACTIONS (8)
  - ABDOMINAL DISTENSION [None]
  - ABDOMINAL PAIN [None]
  - ACIDOSIS [None]
  - DRUG EXPOSURE DURING PREGNANCY [None]
  - FOETAL DISTRESS SYNDROME [None]
  - HAEMATOCHEZIA [None]
  - NECROTISING COLITIS [None]
  - RESPIRATORY DISTRESS [None]
